FAERS Safety Report 16167525 (Version 3)
Quarter: 2019Q2

REPORT INFORMATION
  Report Type: Report from Study
  Country: BR (occurrence: BR)
  Receive Date: 20190408
  Receipt Date: 20190502
  Transmission Date: 20190711
  Serious: Yes (Other)
  Sender: FDA-Public Use
  Company Number: BR-ROCHE-2288382

PATIENT
  Age: 64 Year
  Sex: Female
  Weight: 62 kg

DRUGS (3)
  1. AEROLIN [Concomitant]
     Active Substance: ALBUTEROL
     Indication: PRODUCT USED FOR UNKNOWN INDICATION
     Dosage: UNK
     Route: 065
  2. XOLAIR [Suspect]
     Active Substance: OMALIZUMAB
     Indication: ASTHMA
     Route: 058
     Dates: start: 201812, end: 201903
  3. ALENIA [BUDESONIDE;FORMOTEROL FUMARATE] [Concomitant]
     Indication: ASTHMA
     Dosage: 400 MG, BID (30 YEARS AGO)
     Route: 055

REACTIONS (4)
  - Fatigue [Recovering/Resolving]
  - Drug ineffective [Unknown]
  - Lung disorder [Not Recovered/Not Resolved]
  - Dyspnoea [Recovering/Resolving]

NARRATIVE: CASE EVENT DATE: 201812
